FAERS Safety Report 8191403-0 (Version None)
Quarter: 2012Q1

REPORT INFORMATION
  Report Type: 
  Country: None (occurrence: None)
  Receive Date: 20120307
  Receipt Date: 20110912
  Transmission Date: 20120608
  Serious: No
  Sender: FDA-Public Use
  Company Number: US-ASTRAZENECA-2011SE54953

PATIENT
  Age: 48 Year
  Sex: Female

DRUGS (4)
  1. EXEDRINE MIGRAINE [Concomitant]
  2. WARFARIN SODIUM [Concomitant]
  3. ZOMIG [Suspect]
     Route: 048
  4. COUMADIN [Suspect]

REACTIONS (3)
  - BLOOD TEST ABNORMAL [None]
  - MIGRAINE [None]
  - HORMONE LEVEL ABNORMAL [None]
